FAERS Safety Report 16751342 (Version 1)
Quarter: 2019Q3

REPORT INFORMATION
  Report Type: Spontaneous
  Country: JP (occurrence: JP)
  Receive Date: 20190828
  Receipt Date: 20190828
  Transmission Date: 20191005
  Serious: Yes (Other)
  Sender: FDA-Public Use
  Company Number: JP-PFIZER INC-2019361858

PATIENT
  Age: 70 Year
  Sex: Female

DRUGS (8)
  1. EPERISONE [Concomitant]
     Active Substance: EPERISONE
  2. REBAMIPIDE [Concomitant]
     Active Substance: REBAMIPIDE
  3. NEXIUM I.V. [Concomitant]
     Active Substance: ESOMEPRAZOLE SODIUM
  4. TRAMAL [Concomitant]
     Active Substance: TRAMADOL
  5. FERROUS SULFATE. [Concomitant]
     Active Substance: FERROUS SULFATE
  6. AMLODIPINE [Concomitant]
     Active Substance: AMLODIPINE BESYLATE
  7. LYRICA [Suspect]
     Active Substance: PREGABALIN
     Indication: CHEST PAIN
     Dosage: 25 MG, 2X/DAY
     Route: 048
     Dates: start: 20190531, end: 20190614
  8. TELMISARTAN. [Concomitant]
     Active Substance: TELMISARTAN

REACTIONS (3)
  - Mental impairment [Recovered/Resolved]
  - Nausea [Recovered/Resolved]
  - Hypokinesia [Recovered/Resolved]

NARRATIVE: CASE EVENT DATE: 20190601
